FAERS Safety Report 22147711 (Version 1)
Quarter: 2023Q1

REPORT INFORMATION
  Report Type: Spontaneous
  Country: US (occurrence: None)
  Receive Date: 20230328
  Receipt Date: 20230328
  Transmission Date: 20230418
  Serious: Yes (Hospitalization)
  Sender: FDA-Public Use
  Company Number: None

PATIENT
  Age: 73 Year
  Sex: Male
  Weight: 94.6 kg

DRUGS (1)
  1. TISAGENLECLEUCEL [Suspect]
     Active Substance: TISAGENLECLEUCEL
     Indication: Product used for unknown indication
     Dosage: OTHER FREQUENCY : ONCE;?
     Route: 042
     Dates: start: 20230207, end: 20230207

REACTIONS (2)
  - Cytokine release syndrome [None]
  - Atrial fibrillation [None]

NARRATIVE: CASE EVENT DATE: 20230208
